FAERS Safety Report 19773262 (Version 1)
Quarter: 2021Q3

REPORT INFORMATION
  Report Type: Spontaneous
  Country: KW (occurrence: KW)
  Receive Date: 20210901
  Receipt Date: 20210901
  Transmission Date: 20211014
  Serious: Yes (Death, Other)
  Sender: FDA-Public Use
  Company Number: KW-PFIZER INC-202101072739

PATIENT
  Age: 62 Year
  Sex: Female

DRUGS (3)
  1. VANCOMYCIN HCL [Suspect]
     Active Substance: VANCOMYCIN HYDROCHLORIDE
     Indication: INFECTION
     Dosage: UNK (ON DAYS 13, 16, 34, AND 75, AT DOSES OF 500?1,000 MG)
  2. HEPARIN [Concomitant]
     Active Substance: HEPARIN SODIUM
     Indication: HAEMODIALYSIS
     Dosage: UNK
  3. AMIKACIN. [Concomitant]
     Active Substance: AMIKACIN
     Indication: INFECTION
     Dosage: 240 MG

REACTIONS (1)
  - Thrombocytopenia [Fatal]
